FAERS Safety Report 5897808-2 (Version None)
Quarter: 2008Q3

REPORT INFORMATION
  Report Type: 
  Country: None (occurrence: None)
  Receive Date: 20080925
  Receipt Date: 20080915
  Transmission Date: 20090109
  Serious: Yes (Other)
  Sender: FDA-Public Use
  Company Number: DE-ROCHE-584279

PATIENT
  Sex: Male

DRUGS (1)
  1. BONDRONAT [Suspect]
     Indication: BONE MARROW OEDEMA
     Dosage: DOSE: 6 MG IN 100 ML NACL. CO-INDICATION: OSTEONECROSIS
     Route: 042
     Dates: start: 20080813

REACTIONS (3)
  - BODY TEMPERATURE INCREASED [None]
  - MYALGIA [None]
  - OSTEOCHONDROSIS [None]
